FAERS Safety Report 7764892-0 (Version None)
Quarter: 2011Q3

REPORT INFORMATION
  Report Type: 
  Country: None (occurrence: None)
  Receive Date: 20110921
  Receipt Date: 20110914
  Transmission Date: 20111222
  Serious: Yes (Hospitalization, Other)
  Sender: FDA-Public Use
  Company Number: CA-ROCHE-748613

PATIENT
  Sex: Female
  Weight: 65.8 kg

DRUGS (12)
  1. TOCILIZUMAB [Suspect]
     Indication: RHEUMATOID ARTHRITIS
     Dosage: 200MG/10ML VIAL
     Route: 042
     Dates: start: 20101111
  2. PLAQUENIL [Concomitant]
     Dosage: REPORTED AS 2 TABS ONCE A DAY.
  3. TOCILIZUMAB [Suspect]
     Route: 042
     Dates: start: 20110404
  4. PREDNISONE [Concomitant]
  5. ERGOCALCIFEROL [Concomitant]
     Dosage: 1000 UNIT/ DAY
  6. OMEPRAZOLE [Concomitant]
  7. ACTONEL [Concomitant]
  8. NAPROSYN [Concomitant]
  9. CELEBREX [Concomitant]
  10. LEFLUNOMIDE [Concomitant]
  11. TYLENOL-500 [Concomitant]
     Dosage: REPORTED AS PM. DRUG REPORTED AS TYLENOL WICODEINE NO 3
  12. CALCIUM CARBONATE [Concomitant]

REACTIONS (4)
  - URINARY TRACT INFECTION [None]
  - RENAL FAILURE [None]
  - DIVERTICULITIS [None]
  - TENDON RUPTURE [None]
